FAERS Safety Report 4371531-8 (Version None)
Quarter: 2004Q2

REPORT INFORMATION
  Report Type: 
  Country: None (occurrence: None)
  Receive Date: 20040601
  Receipt Date: 20040212
  Transmission Date: 20050107
  Serious: No
  Sender: FDA-Public Use
  Company Number: 701464

PATIENT
  Age: 75 Year
  Sex: Male
  Weight: 81.6475 kg

DRUGS (1)
  1. AMEVIVE [Suspect]
     Indication: PSORIASIS
     Dosage: 15 MG QW IM
     Route: 030
     Dates: start: 20031211

REACTIONS (2)
  - PARAESTHESIA [None]
  - RHINORRHOEA [None]
